FAERS Safety Report 9925745 (Version 1)
Quarter: 2014Q1

REPORT INFORMATION
  Report Type: Spontaneous
  Country: US (occurrence: None)
  Receive Date: 20140221
  Receipt Date: 20140221
  Transmission Date: 20141002
  Serious: Yes (Other)
  Sender: FDA-Public Use
  Company Number: 001673134A

PATIENT
  Age: 51 Year
  Sex: Female

DRUGS (4)
  1. MEANINGFUL BEAUTY ANTIOXDANT DAY CREME WITH SPF 20 [Suspect]
     Dosage: DERMAL
     Route: 061
     Dates: start: 20140129, end: 20140130
  2. MEANINGFUL BEAUTY SKIN BRIGHTENING DECOLLETE NECK TREATMENT SPF.15 [Suspect]
     Dosage: DERMAL
     Route: 061
     Dates: start: 20140129, end: 20140130
  3. ARMOUR THYROID [Concomitant]
  4. VIVELLE [Concomitant]

REACTIONS (2)
  - Urticaria [None]
  - Application site erythema [None]
